FAERS Safety Report 11618381 (Version 1)
Quarter: 2015Q4

REPORT INFORMATION
  Report Type: Report from Study
  Country: US (occurrence: US)
  Receive Date: 20151012
  Receipt Date: 20151012
  Transmission Date: 20160304
  Serious: Yes (Other)
  Sender: FDA-Public Use
  Company Number: PHEH2015US007116

PATIENT
  Age: 25 Year
  Sex: Female
  Weight: 168 kg

DRUGS (4)
  1. GLEEVEC [Suspect]
     Active Substance: IMATINIB MESYLATE
     Route: 048
  2. FLORASTOR [Concomitant]
     Active Substance: SACCHAROMYCES CEREVISIAE
     Indication: INFECTION
     Dosage: 250 UNK, UNK
     Route: 048
  3. GLEEVEC [Suspect]
     Active Substance: IMATINIB MESYLATE
     Indication: GASTROINTESTINAL STROMAL TUMOUR
     Dosage: 400 MG, QD
     Route: 048
     Dates: start: 20150209, end: 20150305
  4. FLUCONAZOL [Concomitant]
     Active Substance: FLUCONAZOLE
     Indication: INFECTION
     Dosage: 100 MG, QD
     Route: 048
     Dates: start: 20150123

REACTIONS (1)
  - Neutropenia [Recovered/Resolved]

NARRATIVE: CASE EVENT DATE: 20150305
